FAERS Safety Report 5202416-2 (Version None)
Quarter: 2006Q4

REPORT INFORMATION
  Report Type: 
  Country: None (occurrence: None)
  Receive Date: 20061010
  Receipt Date: 20060120
  Transmission Date: 20070319
  Serious: Yes (Life-Threatening)
  Sender: FDA-Public Use
  Company Number: 2006P1000049

PATIENT
  Age: 42 Year
  Sex: Male

DRUGS (4)
  1. RETEPLASE (RETEPLASE) [Suspect]
     Indication: ACUTE MYOCARDIAL INFARCTION
  2. ABCIXIMAB (ABCIXIMAB) [Suspect]
     Indication: ACUTE MYOCARDIAL INFARCTION
  3. ASPIRIN [Concomitant]
  4. HEPARIN [Concomitant]

REACTIONS (1)
  - VENTRICULAR FIBRILLATION [None]
